FAERS Safety Report 14835476 (Version 2)
Quarter: 2018Q2

REPORT INFORMATION
  Report Type: Spontaneous
  Country: US (occurrence: US)
  Receive Date: 20180502
  Receipt Date: 20180504
  Transmission Date: 20180711
  Serious: Yes (Other)
  Sender: FDA-Public Use
  Company Number: PHEH2018US016043

PATIENT
  Sex: Female

DRUGS (1)
  1. AFINITOR [Suspect]
     Active Substance: EVEROLIMUS
     Indication: BREAST CANCER
     Dosage: 7.5 MG, QD
     Route: 048
     Dates: start: 20170405

REACTIONS (9)
  - Metastases to bone [Unknown]
  - Computerised tomogram thorax abnormal [Unknown]
  - Pyrexia [Unknown]
  - Fatigue [Unknown]
  - Inflammation [Unknown]
  - Sinusitis [Unknown]
  - Infection [Unknown]
  - Pneumonia [Unknown]
  - Body temperature increased [Unknown]
